FAERS Safety Report 8502707-3 (Version None)
Quarter: 2012Q3

REPORT INFORMATION
  Report Type: 
  Country: None (occurrence: None)
  Receive Date: 20120711
  Receipt Date: 20120707
  Transmission Date: 20120928
  Serious: No
  Sender: FDA-Public Use
  Company Number: US-TEVA-347487USA

PATIENT
  Sex: Female
  Weight: 56.75 kg

DRUGS (1)
  1. PLAN B ONE-STEP [Suspect]
     Indication: POST COITAL CONTRACEPTION
     Dosage: 1.5 MILLIGRAM;
     Route: 048
     Dates: start: 20120703, end: 20120703

REACTIONS (7)
  - BREAST DISORDER [None]
  - MENSTRUATION IRREGULAR [None]
  - HEADACHE [None]
  - BREAST TENDERNESS [None]
  - FATIGUE [None]
  - ABDOMINAL PAIN LOWER [None]
  - DIZZINESS [None]
